FAERS Safety Report 13412208 (Version 2)
Quarter: 2018Q1

REPORT INFORMATION
  Report Type: Spontaneous
  Country: US (occurrence: US)
  Receive Date: 20170406
  Receipt Date: 20180118
  Transmission Date: 20180508
  Serious: No
  Sender: FDA-Public Use
  Company Number: US-JNJFOC-20170314455

PATIENT
  Age: 22 Year
  Sex: Male

DRUGS (32)
  1. RISPERDAL [Suspect]
     Active Substance: RISPERIDONE
     Indication: WEIGHT DECREASED
     Route: 048
     Dates: start: 20121029
  2. RISPERIDONE. [Suspect]
     Active Substance: RISPERIDONE
     Indication: EPILEPSY
     Dosage: 0.5 ML EVERY NIGHT
     Route: 048
     Dates: start: 20121101, end: 20130305
  3. RISPERIDONE. [Suspect]
     Active Substance: RISPERIDONE
     Indication: WEIGHT DECREASED
     Route: 048
  4. RISPERIDONE. [Suspect]
     Active Substance: RISPERIDONE
     Indication: WEIGHT DECREASED
     Dosage: 0.5 ML EVERY NIGHT
     Route: 048
     Dates: start: 20130407, end: 20140203
  5. RISPERIDONE. [Suspect]
     Active Substance: RISPERIDONE
     Indication: TUBEROUS SCLEROSIS COMPLEX
     Dosage: 0.5 ML EVERY NIGHT
     Route: 048
     Dates: start: 20130407, end: 20140203
  6. RISPERDAL [Suspect]
     Active Substance: RISPERIDONE
     Indication: PRODUCT USED FOR UNKNOWN INDICATION
     Route: 048
  7. RISPERDAL [Suspect]
     Active Substance: RISPERIDONE
     Indication: TUBEROUS SCLEROSIS COMPLEX
     Route: 048
     Dates: start: 20121029
  8. RISPERIDONE. [Suspect]
     Active Substance: RISPERIDONE
     Indication: ORGANIC BRAIN SYNDROME
     Route: 048
  9. RISPERIDONE. [Suspect]
     Active Substance: RISPERIDONE
     Indication: EPILEPSY
     Route: 048
  10. RISPERIDONE. [Suspect]
     Active Substance: RISPERIDONE
     Indication: AGITATION
     Route: 048
  11. RISPERIDONE. [Suspect]
     Active Substance: RISPERIDONE
     Indication: AGITATION
     Route: 048
     Dates: start: 20140314, end: 20161118
  12. RISPERIDONE. [Suspect]
     Active Substance: RISPERIDONE
     Indication: TUBEROUS SCLEROSIS COMPLEX
     Route: 048
  13. RISPERIDONE. [Suspect]
     Active Substance: RISPERIDONE
     Indication: TUBEROUS SCLEROSIS COMPLEX
     Route: 048
  14. RISPERIDONE. [Suspect]
     Active Substance: RISPERIDONE
     Indication: AGITATION
     Route: 048
  15. RISPERIDONE. [Suspect]
     Active Substance: RISPERIDONE
     Indication: WEIGHT DECREASED
     Route: 048
     Dates: start: 20140314, end: 20161118
  16. RISPERIDONE. [Suspect]
     Active Substance: RISPERIDONE
     Indication: TUBEROUS SCLEROSIS COMPLEX
     Dosage: 0.5 ML EVERY NIGHT
     Route: 048
     Dates: start: 20121101, end: 20130305
  17. RISPERIDONE. [Suspect]
     Active Substance: RISPERIDONE
     Indication: EPILEPSY
     Dosage: 0.5 ML EVERY NIGHT
     Route: 048
     Dates: start: 20130407, end: 20140203
  18. RISPERDAL [Suspect]
     Active Substance: RISPERIDONE
     Indication: ORGANIC BRAIN SYNDROME
     Route: 048
     Dates: start: 20121029
  19. RISPERIDONE. [Suspect]
     Active Substance: RISPERIDONE
     Indication: WEIGHT DECREASED
     Dosage: 0.5 ML EVERY NIGHT
     Route: 048
     Dates: start: 20121101, end: 20130305
  20. RISPERIDONE. [Suspect]
     Active Substance: RISPERIDONE
     Indication: ORGANIC BRAIN SYNDROME
     Route: 048
     Dates: start: 20140314, end: 20161118
  21. RISPERIDONE. [Suspect]
     Active Substance: RISPERIDONE
     Indication: AGITATION
     Dosage: 0.5 ML EVERY NIGHT
     Route: 048
     Dates: start: 20130407, end: 20140203
  22. RISPERIDONE. [Suspect]
     Active Substance: RISPERIDONE
     Indication: ORGANIC BRAIN SYNDROME
     Dosage: 0.5 ML EVERY NIGHT
     Route: 048
     Dates: start: 20130407, end: 20140203
  23. RISPERDAL [Suspect]
     Active Substance: RISPERIDONE
     Indication: PRODUCT USED FOR UNKNOWN INDICATION
     Route: 048
     Dates: start: 20121101, end: 20161118
  24. RISPERDAL [Suspect]
     Active Substance: RISPERIDONE
     Indication: AGITATION
     Route: 048
     Dates: start: 20121029
  25. RISPERDAL [Suspect]
     Active Substance: RISPERIDONE
     Indication: EPILEPSY
     Route: 048
     Dates: start: 20121029
  26. RISPERIDONE. [Suspect]
     Active Substance: RISPERIDONE
     Indication: EPILEPSY
     Route: 048
     Dates: start: 20140314, end: 20161118
  27. RISPERIDONE. [Suspect]
     Active Substance: RISPERIDONE
     Indication: ORGANIC BRAIN SYNDROME
     Route: 048
  28. RISPERIDONE. [Suspect]
     Active Substance: RISPERIDONE
     Indication: ORGANIC BRAIN SYNDROME
     Dosage: 0.5 ML EVERY NIGHT
     Route: 048
     Dates: start: 20121101, end: 20130305
  29. RISPERIDONE. [Suspect]
     Active Substance: RISPERIDONE
     Indication: TUBEROUS SCLEROSIS COMPLEX
     Route: 048
     Dates: start: 20140314, end: 20161118
  30. RISPERIDONE. [Suspect]
     Active Substance: RISPERIDONE
     Indication: EPILEPSY
     Route: 048
  31. RISPERIDONE. [Suspect]
     Active Substance: RISPERIDONE
     Indication: AGITATION
     Dosage: 0.5 ML EVERY NIGHT
     Route: 048
     Dates: start: 20121101, end: 20130305
  32. RISPERIDONE. [Suspect]
     Active Substance: RISPERIDONE
     Indication: WEIGHT DECREASED
     Route: 048

REACTIONS (4)
  - Gynaecomastia [Unknown]
  - Product use in unapproved indication [Unknown]
  - Emotional disorder [Unknown]
  - Off label use [Unknown]

NARRATIVE: CASE EVENT DATE: 20121029
